FAERS Safety Report 18223269 (Version 1)
Quarter: 2020Q3

REPORT INFORMATION
  Report Type: Spontaneous
  Country: IT (occurrence: IT)
  Receive Date: 20200902
  Receipt Date: 20200902
  Transmission Date: 20201103
  Serious: Yes (Hospitalization)
  Sender: FDA-Public Use
  Company Number: IT-ELI_LILLY_AND_COMPANY-IT202008011447

PATIENT
  Age: 88 Year
  Sex: Female

DRUGS (2)
  1. CARDURA [Suspect]
     Active Substance: DOXAZOSIN MESYLATE
     Indication: HYPERTENSION
     Dosage: 8 MG, TOTAL DOSE
     Route: 048
     Dates: start: 20200820, end: 20200820
  2. ZYPREXA [Suspect]
     Active Substance: OLANZAPINE
     Indication: SOMATIC SYMPTOM DISORDER
     Dosage: 7.5 MG, TOTAL DOSE
     Route: 048
     Dates: start: 20200820, end: 20200820

REACTIONS (3)
  - Off label use [Unknown]
  - Hypotension [Recovered/Resolved]
  - Extra dose administered [Recovered/Resolved]

NARRATIVE: CASE EVENT DATE: 20200820
